FAERS Safety Report 22664851 (Version 1)
Quarter: 2023Q2

REPORT INFORMATION
  Report Type: Spontaneous
  Country: US (occurrence: None)
  Receive Date: 20230630
  Receipt Date: 20230630
  Transmission Date: 20230721
  Serious: Yes (Hospitalization, Other)
  Sender: FDA-Public Use
  Company Number: None

PATIENT
  Age: 87 Year
  Sex: Female
  Weight: 71.55 kg

DRUGS (22)
  1. PRAVASTATIN [Suspect]
     Active Substance: PRAVASTATIN
  2. REPATHA [Suspect]
     Active Substance: EVOLOCUMAB
  3. LEQVIO [Suspect]
     Active Substance: INCLISIRAN SODIUM
  4. C-PAP [Concomitant]
  5. CANDESTARTAN [Concomitant]
  6. CLOPIDOGREL [Concomitant]
     Active Substance: CLOPIDOGREL BISULFATE
  7. VENAFLAXINE [Concomitant]
  8. LEQVIO [Concomitant]
     Active Substance: INCLISIRAN SODIUM
  9. MYVETRIQ [Concomitant]
  10. OMEPRAZONE [Concomitant]
  11. SYNTHROID [Concomitant]
     Active Substance: LEVOTHYROXINE SODIUM
  12. BIOTIN [Concomitant]
     Active Substance: BIOTIN
  13. CALCIUM [Concomitant]
     Active Substance: CALCIUM
  14. CANNABIS SATIVA SUBSP. INDICA TOP [Concomitant]
     Active Substance: CANNABIS SATIVA SUBSP. INDICA TOP
  15. CRANBERRY [Concomitant]
     Active Substance: CRANBERRY
  16. FISH OIL [Concomitant]
     Active Substance: FISH OIL
  17. CHONDROITIN SULFATE (BOVINE)\GLUCOSAMINE HYDROCHLORIDE [Concomitant]
     Active Substance: CHONDROITIN SULFATE (BOVINE)\GLUCOSAMINE HYDROCHLORIDE
  18. VITAMIN D [Concomitant]
     Active Substance: VITAMIN D NOS
  19. MELATONIN [Concomitant]
     Active Substance: MELATONIN
  20. MIRALAX [Concomitant]
     Active Substance: POLYETHYLENE GLYCOL 3350
  21. MINERALS\VITAMINS [Concomitant]
     Active Substance: MINERALS\VITAMINS
  22. TUMERIC CURCUMIN [Concomitant]

REACTIONS (7)
  - Fall [None]
  - Facial bones fracture [None]
  - Contusion [None]
  - Dyspnoea [None]
  - Haematoma [None]
  - Unevaluable event [None]
  - Dysstasia [None]

NARRATIVE: CASE EVENT DATE: 20221015
